FAERS Safety Report 7776786-5 (Version None)
Quarter: 2011Q3

REPORT INFORMATION
  Report Type: 
  Country: None (occurrence: None)
  Receive Date: 20110922
  Receipt Date: 20110922
  Transmission Date: 20111222
  Serious: Yes (Hospitalization)
  Sender: FDA-Public Use
  Company Number: None

PATIENT
  Sex: Female

DRUGS (1)
  1. TELAPREVIR [Suspect]
     Indication: HEPATITIS C
     Dates: start: 20110701, end: 20110801

REACTIONS (8)
  - STAPHYLOCOCCAL INFECTION [None]
  - DYSPNOEA [None]
  - ABASIA [None]
  - COUGH [None]
  - DRUG RASH WITH EOSINOPHILIA AND SYSTEMIC SYMPTOMS [None]
  - SUPERINFECTION BACTERIAL [None]
  - DERMATITIS EXFOLIATIVE [None]
  - OEDEMA [None]
